FAERS Safety Report 5012369-8 (Version None)
Quarter: 2006Q2

REPORT INFORMATION
  Report Type: 
  Country: None (occurrence: None)
  Receive Date: 20060414
  Receipt Date: 20060220
  Transmission Date: 20061013
  Serious: No
  Sender: FDA-Public Use
  Company Number: 2006SP000866

PATIENT
  Age: 40 Year
  Sex: Female
  Weight: 61.2356 kg

DRUGS (5)
  1. LUNESTA [Suspect]
     Indication: INSOMNIA
     Dosage: HS;ORAL
     Route: 048
     Dates: start: 20051001
  2. FLEXERIL [Concomitant]
  3. TRAZODONE HCL [Concomitant]
  4. EFFEXOR [Concomitant]
  5. DEXTROMETHORPHAN W/ GUAIFENESIN/PSEUDOEPHEDRIN MAGNESIUM [Concomitant]

REACTIONS (1)
  - DYSGEUSIA [None]
